FAERS Safety Report 4321345-X (Version None)
Quarter: 2004Q1

REPORT INFORMATION
  Report Type: 
  Country: None (occurrence: None)
  Receive Date: 20040322
  Receipt Date: 20040322
  Transmission Date: 20041129
  Serious: Yes (Other)
  Sender: FDA-Public Use
  Company Number: None

PATIENT
  Age: 33 Year
  Sex: Male
  Weight: 78 kg

DRUGS (1)
  1. CLOZAPINE [Suspect]
     Dosage: 300 MG HS PO
     Route: 048
     Dates: start: 20040108, end: 20040304

REACTIONS (1)
  - OBSESSIVE-COMPULSIVE DISORDER [None]
